FAERS Safety Report 8577895-3 (Version None)
Quarter: 2012Q3

REPORT INFORMATION
  Report Type: 
  Country: None (occurrence: None)
  Receive Date: 20120808
  Receipt Date: 20080402
  Transmission Date: 20120928
  Serious: No
  Sender: FDA-Public Use
  Company Number: 2008BI008763

PATIENT
  Age: 36 Year
  Sex: Male

DRUGS (2)
  1. AVONEX [Suspect]
     Indication: MULTIPLE SCLEROSIS
     Route: 030
     Dates: start: 20071005
  2. TYLENOL [Concomitant]
     Indication: PREMEDICATION

REACTIONS (12)
  - TREMOR [None]
  - FEELING COLD [None]
  - BLOOD POTASSIUM INCREASED [None]
  - POLLAKIURIA [None]
  - DEPRESSED MOOD [None]
  - INFLUENZA LIKE ILLNESS [None]
  - SLEEP DISORDER [None]
  - FATIGUE [None]
  - VITAMIN B12 DEFICIENCY [None]
  - EMOTIONAL DISORDER [None]
  - INSOMNIA [None]
  - PAIN [None]
